FAERS Safety Report 21016151 (Version 1)
Quarter: 2022Q2

REPORT INFORMATION
  Report Type: Spontaneous
  Country: US (occurrence: None)
  Receive Date: 20220627
  Receipt Date: 20220627
  Transmission Date: 20220720
  Serious: Yes (Hospitalization)
  Sender: FDA-Public Use
  Company Number: None

PATIENT
  Age: 52 Year
  Sex: Male

DRUGS (1)
  1. PROGRAF [Suspect]
     Active Substance: TACROLIMUS
     Indication: Renal transplant
     Dosage: OTHER QUANTITY : 3MG IN AM, 2MG PM;?FREQUENCY : TWICE A DAY;?
     Route: 048

REACTIONS (3)
  - Acute kidney injury [None]
  - Kidney transplant rejection [None]
  - Transplant rejection [None]

NARRATIVE: CASE EVENT DATE: 20220516
